FAERS Safety Report 14659036 (Version 3)
Quarter: 2018Q2

REPORT INFORMATION
  Report Type: Spontaneous
  Country: NL (occurrence: NL)
  Receive Date: 20180320
  Receipt Date: 20180607
  Transmission Date: 20180711
  Serious: Yes (Hospitalization, Other)
  Sender: FDA-Public Use
  Company Number: NL-BIOGEN-2018BI00542419

PATIENT
  Age: 43 Year
  Sex: Female

DRUGS (5)
  1. GILENYA [Concomitant]
     Active Substance: FINGOLIMOD HYDROCHLORIDE
     Indication: MULTIPLE SCLEROSIS
     Dosage: 0.5 MG, QD
     Route: 048
     Dates: start: 20160108, end: 20160307
  2. FAMPYRA [Suspect]
     Active Substance: DALFAMPRIDINE
     Indication: MULTIPLE SCLEROSIS
     Dosage: 5 MG, (1DD1.5 TABLETS)
     Route: 048
     Dates: start: 20130402
  3. TYSABRI [Suspect]
     Active Substance: NATALIZUMAB
     Indication: PRODUCT USED FOR UNKNOWN INDICATION
     Route: 065
  4. METHYLPREDNISOLONE. [Concomitant]
     Active Substance: METHYLPREDNISOLONE
     Indication: PRODUCT USED FOR UNKNOWN INDICATION
     Dosage: 1000 MG, UNK
     Route: 065
     Dates: start: 201503, end: 201503
  5. TYSABRI [Suspect]
     Active Substance: NATALIZUMAB
     Route: 065
     Dates: start: 201611

REACTIONS (9)
  - Swelling face [Not Recovered/Not Resolved]
  - Malaise [Recovered/Resolved]
  - Weight increased [Not Recovered/Not Resolved]
  - Hypertension [Not Recovered/Not Resolved]
  - Fluid retention [Unknown]
  - Lymphopenia [Recovered/Resolved]
  - Hypothermia [Recovered/Resolved]
  - Depression [Unknown]
  - White blood cell count decreased [Unknown]

NARRATIVE: CASE EVENT DATE: 20160212
